FAERS Safety Report 7638728-2 (Version None)
Quarter: 2011Q3

REPORT INFORMATION
  Report Type: 
  Country: None (occurrence: None)
  Receive Date: 20110727
  Receipt Date: 20110715
  Transmission Date: 20111222
  Serious: Yes (Hospitalization)
  Sender: FDA-Public Use
  Company Number: JP-ROCHE-626529

PATIENT
  Sex: Female
  Weight: 40 kg

DRUGS (24)
  1. MUCOSTA [Concomitant]
     Dosage: FORM REPORTED: PERORAL AGENT.
     Route: 048
  2. TOCILIZUMAB [Suspect]
     Route: 041
     Dates: start: 20090114, end: 20090114
  3. PROGRAF [Concomitant]
     Route: 048
  4. ONEALFA [Concomitant]
     Dosage: FORM REPORTED: PERORAL AGENT
     Route: 048
  5. TOCILIZUMAB [Suspect]
     Route: 041
     Dates: start: 20090325, end: 20090325
  6. TOCILIZUMAB [Suspect]
     Route: 041
     Dates: start: 20090630, end: 20090630
  7. PREDNISOLONE [Suspect]
     Route: 048
     Dates: start: 20080903, end: 20081028
  8. TOCILIZUMAB [Suspect]
     Route: 041
     Dates: start: 20090610, end: 20090610
  9. TOCILIZUMAB [Suspect]
     Route: 041
     Dates: start: 20100105, end: 20100310
  10. FOSAMAX [Concomitant]
     Dosage: DRUG REPORTED AS FOSAMAC 5 MG
     Route: 048
  11. VOLTAREN [Concomitant]
     Dosage: FORM REPORTED: PERORAL AGENT
     Route: 048
  12. TOCILIZUMAB [Suspect]
     Indication: RHEUMATOID ARTHRITIS
     Route: 041
     Dates: start: 20080806, end: 20080806
  13. TOCILIZUMAB [Suspect]
     Route: 041
     Dates: start: 20081028, end: 20081028
  14. TOCILIZUMAB [Suspect]
     Route: 041
     Dates: start: 20081217, end: 20081217
  15. TOCILIZUMAB [Suspect]
     Route: 041
     Dates: start: 20100331, end: 20100512
  16. TOCILIZUMAB [Suspect]
     Route: 041
     Dates: start: 20100602, end: 20100714
  17. TOCILIZUMAB [Suspect]
     Route: 041
     Dates: start: 20081126, end: 20081126
  18. TOCILIZUMAB [Suspect]
     Route: 041
     Dates: start: 20090204, end: 20090204
  19. TOCILIZUMAB [Suspect]
     Route: 041
     Dates: start: 20090819, end: 20091111
  20. PREDNISOLONE [Suspect]
     Indication: RHEUMATOID ARTHRITIS
     Route: 048
     Dates: end: 20080902
  21. LANSOPRAZOLE [Concomitant]
     Route: 048
  22. TOCILIZUMAB [Suspect]
     Route: 041
     Dates: start: 20090729, end: 20090729
  23. PREDNISOLONE [Suspect]
     Route: 048
     Dates: start: 20081029
  24. TOCILIZUMAB [Suspect]
     Route: 041
     Dates: start: 20080902, end: 20080902

REACTIONS (4)
  - PNEUMOTHORAX [None]
  - JOINT ARTHROPLASTY [None]
  - INFECTIOUS PLEURAL EFFUSION [None]
  - JOINT DISLOCATION [None]
